FAERS Safety Report 5528235-5 (Version None)
Quarter: 2007Q4

REPORT INFORMATION
  Report Type: 
  Country: None (occurrence: None)
  Receive Date: 20071128
  Receipt Date: 20071116
  Transmission Date: 20080405
  Serious: Yes (Hospitalization, Other)
  Sender: FDA-Public Use
  Company Number: US-PFIZER INC-2007097627

PATIENT
  Sex: Male
  Weight: 128.18 kg

DRUGS (15)
  1. LYRICA [Suspect]
     Indication: NEUROPATHY
     Dates: start: 20060901, end: 20070601
  2. ERLOTINIB [Suspect]
     Indication: LUNG NEOPLASM MALIGNANT
     Dates: start: 20070501, end: 20070601
  3. AMLODIPINE [Concomitant]
  4. LISINOPRIL [Concomitant]
  5. COLCHICINE [Concomitant]
  6. ALLOPURINOL [Concomitant]
  7. NEPHROCAPS [Concomitant]
  8. FOLIC ACID [Concomitant]
  9. MAGNESIUM SULFATE [Concomitant]
  10. IRON [Concomitant]
  11. ASCORBIC ACID [Concomitant]
  12. ACETYLSALICYLIC ACID SRT [Concomitant]
  13. PERCOCET [Concomitant]
  14. CYMBALTA [Concomitant]
  15. SPIRIVA [Concomitant]

REACTIONS (8)
  - ARTHRALGIA [None]
  - ASTHENIA [None]
  - BLOOD CREATININE INCREASED [None]
  - BLOOD UREA INCREASED [None]
  - CARDIAC ARREST [None]
  - METASTASIS [None]
  - PAIN IN EXTREMITY [None]
  - STAPHYLOCOCCAL BACTERAEMIA [None]
